FAERS Safety Report 5497882-1 (Version None)
Quarter: 2007Q4

REPORT INFORMATION
  Report Type: 
  Country: None (occurrence: None)
  Receive Date: 20071025
  Receipt Date: 20071012
  Transmission Date: 20080405
  Serious: Yes (Death, Hospitalization)
  Sender: FDA-Public Use
  Company Number: US-SHR-US-2007-023012

PATIENT
  Age: 57 Year
  Sex: Male

DRUGS (1)
  1. BETASERON [Suspect]
     Indication: RELAPSING-REMITTING MULTIPLE SCLEROSIS
     Dosage: 8 MIU, EVERY 2D
     Route: 058
     Dates: start: 20040421, end: 20070728

REACTIONS (4)
  - ASTHENIA [None]
  - BLOOD COUNT ABNORMAL [None]
  - HODGKIN'S DISEASE [None]
  - SEPSIS [None]
